FAERS Safety Report 13727953 (Version 1)
Quarter: 2017Q3

REPORT INFORMATION
  Report Type: Spontaneous
  Country: SE (occurrence: SE)
  Receive Date: 20170707
  Receipt Date: 20170707
  Transmission Date: 20171127
  Serious: Yes (Other)
  Sender: FDA-Public Use
  Company Number: PHHY2017SE092960

PATIENT
  Age: 51 Year
  Sex: Female

DRUGS (2)
  1. MOMMOX [Suspect]
     Active Substance: MOMETASONE FUROATE
     Indication: SLEEP APNOEA SYNDROME
  2. MOMMOX [Suspect]
     Active Substance: MOMETASONE FUROATE
     Indication: SNORING
     Dosage: 50 MICROGRAM/DOSE 1-2 DOSES AT NIGHT
     Route: 050
     Dates: start: 20160901, end: 20170520

REACTIONS (2)
  - Dyspnoea [Recovered/Resolved]
  - Pharyngeal oedema [Recovered/Resolved]

NARRATIVE: CASE EVENT DATE: 20170520
